FAERS Safety Report 5691915-5 (Version None)
Quarter: 2008Q1

REPORT INFORMATION
  Report Type: 
  Country: None (occurrence: None)
  Receive Date: 20080331
  Receipt Date: 20080318
  Transmission Date: 20080703
  Serious: Yes (Death, Other)
  Sender: FDA-Public Use
  Company Number: 2008-00769

PATIENT
  Age: 58 Year
  Sex: Male
  Weight: 57 kg

DRUGS (32)
  1. VELCADE [Suspect]
     Indication: MULTIPLE MYELOMA
     Dosage: 2.20 MG UNK INTRAVENOUS
     Route: 042
     Dates: start: 20070828, end: 20070925
  2. DEXAMETHASONE [Concomitant]
  3. SULFAMETHOXAZOLE AND TRIMETHOPRIM [Concomitant]
  4. SELBEX (TEPRENONE) [Concomitant]
  5. ALLOPURINOL [Concomitant]
  6. FAMOTIDINE [Concomitant]
  7. NORVASC [Concomitant]
  8. ATARAX-P (HYDROZYZINE HYDROCHLORIDE) [Concomitant]
  9. DIFLUCAN [Concomitant]
  10. POVIDONE IODINE [Concomitant]
  11. DIAMOX (ACETAZOLAMIDE) [Concomitant]
  12. ASPARA K (ASPARTATE POTASSIUM) [Concomitant]
  13. PYDOXAL (PYRIDOXAL PHOSPHATE) [Concomitant]
  14. METHYCOBAL (MECOBALAMIN) [Concomitant]
  15. LOXONIN (LOXOPROFEN SODIUM) [Concomitant]
  16. FLUMETHOLON (FLUOROMETHOLONE) [Concomitant]
  17. AZOPT [Concomitant]
  18. ALLEGRA [Concomitant]
  19. HIRUDOID (HEPARINOID) [Concomitant]
  20. ANTEBATE (BETAMETHASONE BUTYRATE PROPIONATE) [Concomitant]
  21. NOVOLIN N [Concomitant]
  22. NOVORAPID (INSULIN ASPART) [Concomitant]
  23. SODIUM BICARBONATE [Concomitant]
  24. GANCICLOVIR [Concomitant]
  25. LASIX [Concomitant]
  26. PANTOSIN (PANTETHINE) [Concomitant]
  27. MAGNESIUM OXIDE (MAGNESIUM OXIDE) [Concomitant]
  28. LANSOPRAZOLE [Concomitant]
  29. MALFA/JPN/(MAGNESIUM HYDROXIDE, ALUMINIUM HYDROXIDE) [Concomitant]
  30. DEPAS (ETIZOLAM) [Concomitant]
  31. AMOBAN (ZOPICLONE) [Concomitant]
  32. ZOMETA [Concomitant]

REACTIONS (14)
  - ABDOMINAL PAIN UPPER [None]
  - ANAEMIA [None]
  - ANOREXIA [None]
  - DIARRHOEA [None]
  - DISEASE PROGRESSION [None]
  - HYPOALBUMINAEMIA [None]
  - HYPONATRAEMIA [None]
  - INSOMNIA [None]
  - MALIGNANT PLEURAL EFFUSION [None]
  - MULTIPLE MYELOMA [None]
  - OEDEMA [None]
  - PLATELET COUNT DECREASED [None]
  - SEPSIS [None]
  - VISUAL ACUITY REDUCED [None]
